FAERS Safety Report 9468742 (Version 2)
Quarter: 2013Q3

REPORT INFORMATION
  Report Type: Spontaneous
  Country: CA (occurrence: CA)
  Receive Date: 20130821
  Receipt Date: 20130821
  Transmission Date: 20140515
  Serious: Yes (Other)
  Sender: FDA-Public Use
  Company Number: CA-BAXTER-2013BAX031134

PATIENT
  Age: 70 Year
  Sex: Female

DRUGS (3)
  1. DIANEAL PD4 SOLUTION WITH 1.5% DEXTROSE AND 2.5 MEQ/L CALCIUM [Suspect]
     Indication: CREATININE RENAL CLEARANCE ABNORMAL
     Route: 033
  2. DIANEAL PD4 SOLUTION WITH 2.5% DEXTROSE AND 2.5 MEQ/L CALCIUM [Suspect]
     Indication: CREATININE RENAL CLEARANCE ABNORMAL
     Route: 033
     Dates: start: 201307
  3. EXTRANEAL [Suspect]
     Indication: CREATININE RENAL CLEARANCE ABNORMAL
     Route: 033

REACTIONS (2)
  - Diabetes mellitus inadequate control [Not Recovered/Not Resolved]
  - Peritoneal dialysis complication [Unknown]
